FAERS Safety Report 18396424 (Version 1)
Quarter: 2020Q4

REPORT INFORMATION
  Report Type: Report from Study
  Country: GB (occurrence: GB)
  Receive Date: 20201019
  Receipt Date: 20201019
  Transmission Date: 20210114
  Serious: Yes (Other)
  Sender: FDA-Public Use
  Company Number: GB-SAMSUNG BIOEPIS-SB-2020-30586

PATIENT
  Age: 62 Year
  Sex: Male

DRUGS (1)
  1. IMRALDI [Suspect]
     Active Substance: ADALIMUMAB
     Indication: ANKYLOSING SPONDYLITIS
     Route: 058
     Dates: start: 20200707

REACTIONS (15)
  - Headache [Unknown]
  - Hypertension [Unknown]
  - Asthenia [Recovering/Resolving]
  - Crohn^s disease [Unknown]
  - Gastrooesophageal reflux disease [Unknown]
  - Malaise [Unknown]
  - Fatigue [Recovering/Resolving]
  - Rhinorrhoea [Unknown]
  - Mouth ulceration [Recovering/Resolving]
  - Oropharyngeal pain [Unknown]
  - Cough [Unknown]
  - Dizziness [Unknown]
  - Ear disorder [Unknown]
  - Sleep disorder [Unknown]
  - Diarrhoea [Unknown]
